FAERS Safety Report 9120614 (Version 5)
Quarter: 2016Q3

REPORT INFORMATION
  Report Type: Report from Study
  Country: JP (occurrence: JP)
  Receive Date: 20130226
  Receipt Date: 20160705
  Transmission Date: 20161109
  Serious: Yes (Death, Hospitalization, Other)
  Sender: FDA-Public Use
  Company Number: JP-GILEAD-2013-0070658

PATIENT
  Age: 36 Year
  Sex: Female
  Weight: 52 kg

DRUGS (34)
  1. AMBRISENTAN [Suspect]
     Active Substance: AMBRISENTAN
     Dosage: 2.5 MG, QD
     Route: 048
     Dates: start: 20110120, end: 20110123
  2. DUPHASTON [Concomitant]
     Active Substance: DYDROGESTERONE
     Indication: PRODUCT USED FOR UNKNOWN INDICATION
     Route: 048
     Dates: start: 20120208, end: 20120410
  3. AMBRISENTAN [Suspect]
     Active Substance: AMBRISENTAN
     Dosage: 2.5 MG, TID
     Route: 048
     Dates: start: 20130324, end: 20130417
  4. ADONA (AC-17) [Concomitant]
     Indication: PRODUCT USED FOR UNKNOWN INDICATION
     Dosage: UNK
     Route: 048
     Dates: end: 20140122
  5. CEFTRIAXONE NA [Concomitant]
     Active Substance: CEFTRIAXONE
     Indication: PROPHYLAXIS
     Dosage: UNK
     Route: 042
     Dates: start: 20130413, end: 20130415
  6. FERROMIA [Concomitant]
     Active Substance: FERROUS CITRATE
     Dosage: UNK
     Route: 048
     Dates: end: 20140118
  7. THALED [Suspect]
     Active Substance: THALIDOMIDE
     Indication: VASODILATATION
     Dosage: UNK
     Route: 048
     Dates: start: 20130604, end: 20140102
  8. ADONA (AC-17) [Concomitant]
     Dosage: UNK
     Route: 042
     Dates: start: 20131206, end: 20140123
  9. TRANEXAMIC ACID. [Concomitant]
     Active Substance: TRANEXAMIC ACID
     Dosage: UNK
     Route: 042
     Dates: start: 20130413, end: 20130519
  10. AMBRISENTAN [Suspect]
     Active Substance: AMBRISENTAN
     Dosage: 5 MG, BID
     Route: 048
     Dates: start: 20121004, end: 20121011
  11. TRANSAMIN [Suspect]
     Active Substance: TRANEXAMIC ACID
     Indication: PRODUCT USED FOR UNKNOWN INDICATION
     Dosage: UNK
     Route: 048
     Dates: start: 20130604, end: 20140102
  12. OMEPRAZOLE. [Concomitant]
     Active Substance: OMEPRAZOLE
     Indication: PRODUCT USED FOR UNKNOWN INDICATION
     Dosage: UNK
     Route: 048
     Dates: end: 20130211
  13. REBAMIPIDE [Concomitant]
     Active Substance: REBAMIPIDE
     Indication: PRODUCT USED FOR UNKNOWN INDICATION
     Dosage: UNK
     Route: 048
     Dates: end: 20140120
  14. PENTASA [Concomitant]
     Active Substance: MESALAMINE
     Indication: PRODUCT USED FOR UNKNOWN INDICATION
     Dosage: UNK
     Route: 048
     Dates: start: 20121023
  15. SAMSCA [Concomitant]
     Active Substance: TOLVAPTAN
     Dosage: UNK
     Route: 048
     Dates: start: 20130617, end: 20140122
  16. AMBRISENTAN [Suspect]
     Active Substance: AMBRISENTAN
     Indication: PULMONARY ARTERIAL HYPERTENSION
     Dosage: 2.5 MG, TID
     Route: 048
     Dates: start: 20120404, end: 20121003
  17. AMBRISENTAN [Suspect]
     Active Substance: AMBRISENTAN
     Dosage: 2.5 MG, BID
     Route: 048
     Dates: start: 20121012, end: 20130323
  18. AMBRISENTAN [Suspect]
     Active Substance: AMBRISENTAN
     Dosage: 2.5 MG, BID
     Route: 048
     Dates: start: 20130418, end: 20130704
  19. SPIRONOLACTONE. [Concomitant]
     Active Substance: SPIRONOLACTONE
     Indication: PRODUCT USED FOR UNKNOWN INDICATION
     Dosage: UNK
     Route: 048
     Dates: end: 20140122
  20. ADONA (AC-17) [Concomitant]
     Dosage: UNK
     Route: 042
     Dates: start: 20130307, end: 20130311
  21. ADONA (AC-17) [Concomitant]
     Dosage: UNK
  22. FERROMIA                           /00023516/ [Concomitant]
     Active Substance: FERROUS CITRATE
     Indication: PRODUCT USED FOR UNKNOWN INDICATION
     Dosage: UNK
     Route: 048
     Dates: end: 20140118
  23. TAKEPRON [Concomitant]
     Active Substance: LANSOPRAZOLE
     Indication: PROPHYLAXIS
     Dosage: UNK
     Route: 048
     Dates: start: 20130205, end: 20130307
  24. RABEPRAZOLE NA [Concomitant]
     Active Substance: RABEPRAZOLE SODIUM
     Indication: PROPHYLAXIS
     Dosage: UNK
     Route: 048
     Dates: start: 20130312, end: 20140121
  25. RED CELLS [Concomitant]
     Active Substance: HUMAN RED BLOOD CELL
     Indication: ANAEMIA
  26. ADONA (AC-17) [Concomitant]
     Dosage: UNK
     Route: 042
     Dates: start: 20130413, end: 20130519
  27. CEFTRIAXONE                        /00672202/ [Concomitant]
     Active Substance: CEFTRIAXONE
     Indication: PROPHYLAXIS
     Dosage: UNK
     Route: 042
     Dates: start: 20130413, end: 20130415
  28. AMBRISENTAN [Suspect]
     Active Substance: AMBRISENTAN
     Dosage: 2.5 MG, BID
     Route: 048
     Dates: start: 20110124, end: 20120403
  29. SLOW-K [Concomitant]
     Active Substance: POTASSIUM CHLORIDE
     Indication: PRODUCT USED FOR UNKNOWN INDICATION
     Dosage: UNK
     Route: 048
     Dates: end: 20140120
  30. FLUITRAN [Concomitant]
     Active Substance: TRICHLORMETHIAZIDE
     Dosage: UNK
     Route: 048
     Dates: start: 20130706, end: 20140120
  31. CONCENTRATED HUMAN RED BLOOD CELLS [Concomitant]
     Indication: ANAEMIA
     Route: 051
  32. AMBRISENTAN [Suspect]
     Active Substance: AMBRISENTAN
     Dosage: BID(2.5MG, 5MG)
     Route: 048
     Dates: start: 20130705, end: 20130711
  33. AMBRISENTAN [Suspect]
     Active Substance: AMBRISENTAN
     Dosage: 3.75 MG, BID
     Route: 048
     Dates: start: 20130712, end: 20140123
  34. PREMARIN [Concomitant]
     Active Substance: ESTROGENS, CONJUGATED
     Indication: PRODUCT USED FOR UNKNOWN INDICATION
     Dosage: UNK
     Route: 048
     Dates: end: 20140120

REACTIONS (19)
  - Nasal congestion [Recovering/Resolving]
  - Platelet count decreased [Recovering/Resolving]
  - Tongue haemorrhage [Recovering/Resolving]
  - Face oedema [Recovering/Resolving]
  - Right ventricular failure [Recovering/Resolving]
  - Multiple organ dysfunction syndrome [Fatal]
  - Right ventricular failure [Not Recovered/Not Resolved]
  - Anaemia [Recovering/Resolving]
  - Pulmonary hypertension [Fatal]
  - Nasopharyngitis [Recovered/Resolved]
  - Off label use [Unknown]
  - Oedema peripheral [Recovering/Resolving]
  - Platelet count decreased [Not Recovered/Not Resolved]
  - Device related infection [Recovering/Resolving]
  - Headache [Recovering/Resolving]
  - Anaemia [Recovering/Resolving]
  - Epistaxis [Recovering/Resolving]
  - Anaemia [Recovering/Resolving]
  - Phlebitis [Recovered/Resolved]

NARRATIVE: CASE EVENT DATE: 20120404
